FAERS Safety Report 22397044 (Version 1)
Quarter: 2023Q2

REPORT INFORMATION
  Report Type: Spontaneous
  Country: US (occurrence: US)
  Receive Date: 20230602
  Receipt Date: 20230602
  Transmission Date: 20230722
  Serious: No
  Sender: FDA-Public Use
  Company Number: US-009507513-2305USA010140

PATIENT
  Age: 60 Year
  Sex: Male

DRUGS (7)
  1. INVANZ [Suspect]
     Active Substance: ERTAPENEM SODIUM
     Indication: Vascular device infection
     Dosage: 1 GRAM, QD
     Route: 042
  2. CIPROFLOXACIN [Concomitant]
     Active Substance: CIPROFLOXACIN
     Indication: Salmonellosis
     Dosage: 750 MILLIGRAM, Q12H
     Route: 048
  3. CIPROFLOXACIN [Concomitant]
     Active Substance: CIPROFLOXACIN
     Indication: Vascular device infection
     Dosage: 500 MILLIGRAM, BID
     Route: 048
  4. CIPROFLOXACIN [Concomitant]
     Active Substance: CIPROFLOXACIN
     Dosage: 500 MILLIGRAM, Q12H
  5. CEFTRIAXONE [Concomitant]
     Active Substance: CEFTRIAXONE
     Indication: Salmonellosis
  6. WARFARIN [Concomitant]
     Active Substance: WARFARIN
     Indication: Atrial fibrillation
  7. MEROPENEM [Concomitant]
     Active Substance: MEROPENEM
     Indication: Salmonellosis
     Dosage: UNKNOWN DOSE

REACTIONS (1)
  - Product use in unapproved indication [Unknown]
